FAERS Safety Report 10101799 (Version 1)
Quarter: 2014Q2

REPORT INFORMATION
  Report Type: Spontaneous
  Country: US (occurrence: None)
  Receive Date: 20140423
  Receipt Date: 20140423
  Transmission Date: 20141212
  Serious: Yes (Hospitalization)
  Sender: FDA-Public Use
  Company Number: None

PATIENT
  Age: 67 Year
  Sex: Male
  Weight: 63.96 kg

DRUGS (1)
  1. TAXOTERE [Suspect]
     Indication: LUNG CANCER METASTATIC
     Route: 042

REACTIONS (2)
  - Oxygen supplementation [None]
  - Steroid therapy [None]
